FAERS Safety Report 5515812-0 (Version None)
Quarter: 2007Q4

REPORT INFORMATION
  Report Type: 
  Country: None (occurrence: None)
  Receive Date: 20071109
  Receipt Date: 20071102
  Transmission Date: 20080405
  Serious: Yes (Other)
  Sender: FDA-Public Use
  Company Number: 2007SP022220

PATIENT

DRUGS (2)
  1. PEGATRON                        (PEGYLATED INTERFERON ALFA-2B W/RIBAVI [Suspect]
     Indication: HEPATITIS C
     Dosage: SC, PO
     Route: 058
     Dates: start: 20070101
  2. PEGATRON                        (PEGYLATED INTERFERON ALFA-2B W/RIBAVI [Suspect]
     Indication: HEPATITIS C
     Dosage: SC, PO
     Route: 058
     Dates: start: 20070101

REACTIONS (1)
  - GLAUCOMA [None]
